FAERS Safety Report 11824398 (Version 1)
Quarter: 2015Q4

REPORT INFORMATION
  Report Type: Spontaneous
  Country: TR (occurrence: TR)
  Receive Date: 20151210
  Receipt Date: 20151210
  Transmission Date: 20160305
  Serious: Yes (Hospitalization, Other)
  Sender: FDA-Public Use
  Company Number: TR-OTSUKA-2015_015912

PATIENT
  Age: 4 Year
  Sex: Male

DRUGS (4)
  1. *MELPHALAN [Suspect]
     Active Substance: MELPHALAN
     Indication: NEUROBLASTOMA
  2. BUSILVEX [Suspect]
     Active Substance: BUSULFAN
     Indication: STEM CELL TRANSPLANT
     Dosage: UNK
     Route: 042
  3. BUSILVEX [Suspect]
     Active Substance: BUSULFAN
     Indication: NEUROBLASTOMA
  4. *MELPHALAN [Suspect]
     Active Substance: MELPHALAN
     Indication: STEM CELL TRANSPLANT
     Dosage: UNK
     Route: 042

REACTIONS (2)
  - Pulmonary arterial hypertension [Recovering/Resolving]
  - Drug administration error [Unknown]
